FAERS Safety Report 17427490 (Version 5)
Quarter: 2020Q3

REPORT INFORMATION
  Report Type: Spontaneous
  Country: JP (occurrence: JP)
  Receive Date: 20200217
  Receipt Date: 20200806
  Transmission Date: 20201102
  Serious: Yes (Death, Hospitalization, Other)
  Sender: FDA-Public Use
  Company Number: JP-OTSUKA-2020_004360

PATIENT
  Age: 58 Year
  Sex: Male

DRUGS (11)
  1. DANTROLENE SODIUM. [Suspect]
     Active Substance: DANTROLENE SODIUM
     Indication: PRODUCT USED FOR UNKNOWN INDICATION
     Dosage: UNK
     Route: 065
  2. ZOTEPINE [Concomitant]
     Active Substance: ZOTEPINE
     Indication: PRODUCT USED FOR UNKNOWN INDICATION
     Dosage: 100 MG, QD
     Route: 048
     Dates: start: 20190307, end: 20200202
  3. RISPERIDONE. [Suspect]
     Active Substance: RISPERIDONE
     Indication: PRODUCT USED FOR UNKNOWN INDICATION
     Dosage: 12 MG/DAY, FREQUENCY UNKNOWN
     Route: 048
     Dates: start: 20190523, end: 20200202
  4. REXULTI [Suspect]
     Active Substance: BREXPIPRAZOLE
     Dosage: 1MG/DAY, FREQUENCY UNKNOWN
     Route: 048
     Dates: start: 20200117, end: 20200119
  5. LEVOTOMIN [Concomitant]
     Active Substance: LEVOMEPROMAZINE
     Indication: PRODUCT USED FOR UNKNOWN INDICATION
     Dosage: 50 MG, QD
     Route: 048
     Dates: start: 20190527, end: 20190605
  6. LEVOTOMIN [Concomitant]
     Active Substance: LEVOMEPROMAZINE
     Dosage: 75 MG, QD
     Route: 048
     Dates: start: 20190606, end: 20191024
  7. REXULTI [Suspect]
     Active Substance: BREXPIPRAZOLE
     Indication: SCHIZOPHRENIA
     Dosage: 2MG/DAY, FREQUENCY UNKNOWNUNK
     Route: 048
     Dates: start: 20200120, end: 20200202
  8. SERENACE [Concomitant]
     Active Substance: HALOPERIDOL
     Indication: PRODUCT USED FOR UNKNOWN INDICATION
     Dosage: UNK
     Route: 065
     Dates: end: 202001
  9. RISPERIDONE. [Suspect]
     Active Substance: RISPERIDONE
     Dosage: 9 MG/DAY, FREQUENCY UNKNOWN
     Route: 048
     Dates: start: 20190410, end: 20190522
  10. LEVOTOMIN [Concomitant]
     Active Substance: LEVOMEPROMAZINE
     Dosage: 100 MG, QD
     Route: 048
     Dates: start: 20191025, end: 20200202
  11. OLANZAPINE. [Concomitant]
     Active Substance: OLANZAPINE
     Indication: PRODUCT USED FOR UNKNOWN INDICATION
     Dosage: 5 MG, DAILY DOSE
     Route: 048
     Dates: start: 202001

REACTIONS (6)
  - Pyrexia [Unknown]
  - Depressed level of consciousness [Unknown]
  - Musculoskeletal stiffness [Unknown]
  - Blood creatine phosphokinase increased [Unknown]
  - Serotonin syndrome [Fatal]
  - Respiratory depression [Fatal]

NARRATIVE: CASE EVENT DATE: 20200202
